FAERS Safety Report 10441470 (Version 1)
Quarter: 2014Q3

REPORT INFORMATION
  Report Type: Spontaneous
  Country: GB (occurrence: GB)
  Receive Date: 20140909
  Receipt Date: 20140909
  Transmission Date: 20150326
  Serious: Yes (Other)
  Sender: FDA-Public Use
  Company Number: GB-TEVA-505805ISR

PATIENT
  Age: 54 Year
  Sex: Female
  Weight: 58.96 kg

DRUGS (6)
  1. STUGERON [Concomitant]
     Active Substance: CINNARIZINE
     Dosage: ONE DOSE
     Dates: start: 20140712, end: 20140712
  2. PARACETAMOL [Concomitant]
     Active Substance: ACETAMINOPHEN
     Dosage: OCCASIONAL
  3. LORATADINE. [Concomitant]
     Active Substance: LORATADINE
     Dosage: OCCASIONAL
  4. LOSARTAN [Suspect]
     Active Substance: LOSARTAN
     Indication: ESSENTIAL HYPERTENSION
     Route: 048
     Dates: start: 20140710, end: 20140813
  5. STUGERON [Concomitant]
     Active Substance: CINNARIZINE
     Dosage: ONE DOSE
     Dates: start: 20140719, end: 20140719
  6. LEVOTHYROXINE [Concomitant]
     Active Substance: LEVOTHYROXINE

REACTIONS (5)
  - Back pain [Recovered/Resolved]
  - Malaise [Recovered/Resolved]
  - Fatigue [Recovered/Resolved]
  - Malaise [Recovered/Resolved]
  - Pain [Recovered/Resolved]

NARRATIVE: CASE EVENT DATE: 20140712
